FAERS Safety Report 14433789 (Version 2)
Quarter: 2018Q1

REPORT INFORMATION
  Report Type: Spontaneous
  Country: BR (occurrence: BR)
  Receive Date: 20180124
  Receipt Date: 20180309
  Transmission Date: 20180509
  Serious: Yes (Other)
  Sender: FDA-Public Use
  Company Number: BR-009507513-1801BRA006447

PATIENT
  Age: 49 Year
  Sex: Female
  Weight: 78 kg

DRUGS (8)
  1. ROSUVASTATIN. [Concomitant]
     Active Substance: ROSUVASTATIN
     Indication: CEREBROVASCULAR ACCIDENT PROPHYLAXIS
     Dosage: 1 TABLET, QD
     Route: 048
     Dates: start: 201507
  2. PANTOPRAZOLE [Concomitant]
     Active Substance: PANTOPRAZOLE
     Indication: GASTROOESOPHAGEAL REFLUX DISEASE
     Dosage: 1 TABLET, QAM (BEFORE BREAKFAST)
     Route: 048
     Dates: start: 201607
  3. SYNTHROID [Concomitant]
     Active Substance: LEVOTHYROXINE SODIUM
     Indication: HYPOTHYROIDISM
     Dosage: 1 TABLET, IN THE MORNING (QAM)
     Route: 048
     Dates: start: 2003
  4. DIAMICRON [Concomitant]
     Active Substance: GLICLAZIDE
     Indication: DIABETES MELLITUS
     Dosage: 1 TABLET, QAM
     Route: 048
     Dates: start: 2016, end: 201602
  5. JARDIANCE [Suspect]
     Active Substance: EMPAGLIFLOZIN
     Indication: DIABETES MELLITUS
     Dosage: 1 TABLET, QD (AT LUNCH)
     Route: 048
     Dates: start: 201607
  6. JANUMET [Suspect]
     Active Substance: METFORMIN HYDROCHLORIDE\SITAGLIPTIN PHOSPHATE
     Indication: DIABETES MELLITUS
     Dosage: 1 TABLET, BID (1 TABLET EACH AT BREAKFAST AND DINNER)
     Route: 048
     Dates: start: 201607
  7. AAS [Concomitant]
     Active Substance: ASPIRIN
     Indication: CEREBROVASCULAR ACCIDENT PROPHYLAXIS
     Dosage: 1 TABLET, QD
     Route: 048
     Dates: start: 201507
  8. HYDROCHLOROTHIAZIDE. [Concomitant]
     Active Substance: HYDROCHLOROTHIAZIDE
     Indication: BLOOD PRESSURE MANAGEMENT
     Dosage: 1 TABLET, QD
     Route: 048
     Dates: start: 2008

REACTIONS (8)
  - Blood glucose abnormal [Unknown]
  - Retching [Not Recovered/Not Resolved]
  - Candida infection [Not Recovered/Not Resolved]
  - Urinary tract infection [Recovering/Resolving]
  - Malaise [Not Recovered/Not Resolved]
  - Pain [Not Recovered/Not Resolved]
  - Somnolence [Not Recovered/Not Resolved]
  - Vomiting [Not Recovered/Not Resolved]

NARRATIVE: CASE EVENT DATE: 201607
